FAERS Safety Report 7558326-9 (Version None)
Quarter: 2011Q2

REPORT INFORMATION
  Report Type: 
  Country: None (occurrence: None)
  Receive Date: 20110620
  Receipt Date: 20110608
  Transmission Date: 20111010
  Serious: Yes (Hospitalization)
  Sender: FDA-Public Use
  Company Number: CH-ELI_LILLY_AND_COMPANY-CH201106000195

PATIENT
  Sex: Female

DRUGS (9)
  1. EFFIENT [Suspect]
     Indication: STENT PLACEMENT
     Dosage: 60 MG, LOADING DOSE
     Route: 065
  2. EFFIENT [Suspect]
     Dosage: 10 MG, QD
  3. PREDNISONE [Concomitant]
  4. ASPIRIN [Concomitant]
     Dosage: 100 MG, QD
  5. FUROSPIR [Concomitant]
     Dosage: UNK, QD
  6. IRBESARTAN AND HYDROCHLOROTHIAZIDE [Concomitant]
     Dosage: 12.5 MG, QD
  7. METO ZEROK [Concomitant]
     Dosage: 100 MG, QD
  8. PRAVASTATIN SODIUM [Concomitant]
     Dosage: 40 MG, QD
  9. LORAMET [Concomitant]
     Dosage: 2 MG, UNK

REACTIONS (9)
  - CORONARY ARTERY STENOSIS [None]
  - BRADYCARDIA [None]
  - ASTHMA [None]
  - ANGINA PECTORIS [None]
  - MYOCARDIAL ISCHAEMIA [None]
  - CONTRAST MEDIA ALLERGY [None]
  - DIZZINESS [None]
  - HYPOTENSION [None]
  - IN-STENT CORONARY ARTERY RESTENOSIS [None]
